FAERS Safety Report 6322094-9 (Version None)
Quarter: 2009Q3

REPORT INFORMATION
  Report Type: 
  Country: None (occurrence: None)
  Receive Date: 20090821
  Receipt Date: 20090821
  Transmission Date: 20100115
  Serious: Yes (Other)
  Sender: FDA-Public Use
  Company Number: None

PATIENT
  Age: 34 Year
  Sex: Female
  Weight: 77.1115 kg

DRUGS (1)
  1. LEXAPRO [Suspect]
     Indication: BIPOLAR I DISORDER
     Dosage: 2.5 MG ONCE DAILY, AM PO
     Route: 048
     Dates: start: 20061103, end: 20090811

REACTIONS (11)
  - COGNITIVE DISORDER [None]
  - CONTUSION [None]
  - DISCOMFORT [None]
  - FALL [None]
  - FATIGUE [None]
  - HYPOTENSION [None]
  - IMPAIRED WORK ABILITY [None]
  - MUSCULOSKELETAL STIFFNESS [None]
  - PRURITUS [None]
  - SOMNOLENCE [None]
  - URTICARIA [None]
